FAERS Safety Report 6258274-0 (Version None)
Quarter: 2009Q3

REPORT INFORMATION
  Report Type: 
  Country: None (occurrence: None)
  Receive Date: 20090701
  Receipt Date: 20090122
  Transmission Date: 20100115
  Serious: Yes (Other)
  Sender: FDA-Public Use
  Company Number: 610584

PATIENT
  Age: 51 Year
  Sex: Male
  Weight: 104.3 kg

DRUGS (8)
  1. KLONOPIN [Suspect]
     Indication: RESTLESS LEGS SYNDROME
     Dosage: 0.5 GRAM DAILY
     Dates: start: 20081229, end: 20090110
  2. XYREM [Suspect]
     Indication: NARCOLEPSY
     Dosage: 3 GRAM 2 PER DAY ORAL
     Route: 048
     Dates: start: 20081212
  3. VENLAFAXINE HYDROCHLORIDE [Concomitant]
  4. LANSOPRAZOLE [Concomitant]
  5. PRAVASTATIN SODIUM [Concomitant]
  6. TOPIRAMATE [Concomitant]
  7. CARBIDOPA [Concomitant]
  8. LEVODOPA [Concomitant]

REACTIONS (4)
  - ARTHRALGIA [None]
  - FLUID RETENTION [None]
  - HYPERSOMNIA [None]
  - MYALGIA [None]
